FAERS Safety Report 20321669 (Version 1)
Quarter: 2022Q1

REPORT INFORMATION
  Report Type: Report from Study
  Country: IN (occurrence: IN)
  Receive Date: 20220111
  Receipt Date: 20220111
  Transmission Date: 20220423
  Serious: Yes (Other)
  Sender: FDA-Public Use
  Company Number: IN-MYLANLABS-2022M1001977

PATIENT
  Age: 66 Year
  Sex: Female

DRUGS (1)
  1. OCTREOTIDE [Suspect]
     Active Substance: OCTREOTIDE
     Indication: Gastroenteropancreatic neuroendocrine tumour disease
     Dosage: 30 MILLIGRAM, LONG-ACTING RELEASE; EVERY 4 WEEKS
     Route: 030

REACTIONS (1)
  - Hyperbilirubinaemia [Unknown]
